FAERS Safety Report 10150230 (Version 1)
Quarter: 2014Q2

REPORT INFORMATION
  Report Type: Spontaneous
  Country: US (occurrence: None)
  Receive Date: 20140501
  Receipt Date: 20140501
  Transmission Date: 20141212
  Serious: Yes (Hospitalization)
  Sender: FDA-Public Use
  Company Number: None

PATIENT
  Age: 50 Year
  Sex: Female

DRUGS (10)
  1. IBUPROFEN [Suspect]
     Indication: PAIN
     Route: 048
     Dates: end: 20130926
  2. GLIPIZIDE [Concomitant]
  3. INSULIN GLARGINE [Concomitant]
  4. LISINOPRIL [Concomitant]
  5. HYDROCHLOROTHIAZIDE [Concomitant]
  6. CYCLOBENZAPRINE [Concomitant]
  7. IBUPROFEN [Concomitant]
  8. METFORMIN [Concomitant]
  9. GABAPENTIN [Concomitant]
  10. PERCOCET [Concomitant]

REACTIONS (1)
  - Blood creatinine increased [None]
